FAERS Safety Report 9422708 (Version 3)
Quarter: 2013Q3

REPORT INFORMATION
  Report Type: Spontaneous
  Country: US (occurrence: US)
  Receive Date: 20130726
  Receipt Date: 20130820
  Transmission Date: 20140515
  Serious: No
  Sender: FDA-Public Use
  Company Number: US-009507513-1307USA007215

PATIENT
  Age: 84 Year
  Sex: Female
  Weight: 53.52 kg

DRUGS (6)
  1. CLARITIN-D-24 [Suspect]
     Indication: RESPIRATORY TRACT CONGESTION
     Dosage: 10 MG, QD
     Route: 048
     Dates: start: 20130709, end: 20130711
  2. CLARITIN-D-24 [Suspect]
     Indication: RHINORRHOEA
  3. CLARITIN-D-24 [Suspect]
     Indication: LACRIMATION INCREASED
  4. CLARITIN-D-24 [Suspect]
     Indication: COUGH
  5. CLARITIN-D-24 [Suspect]
     Indication: MEDICAL OBSERVATION
  6. CYANOCOBALAMIN [Concomitant]
     Indication: PERNICIOUS ANAEMIA
     Dosage: UNK, QM

REACTIONS (1)
  - Insomnia [Recovered/Resolved]
